FAERS Safety Report 5010591-8 (Version None)
Quarter: 2006Q2

REPORT INFORMATION
  Report Type: 
  Country: None (occurrence: None)
  Receive Date: 20060524
  Receipt Date: 20060524
  Transmission Date: 20061013
  Serious: Yes (Life-Threatening)
  Sender: FDA-Public Use
  Company Number: None

PATIENT
  Age: 53 Year
  Sex: Male

DRUGS (15)
  1. TIPRANAVIR  500MG  BOEHRINGER INGELHEIM [Suspect]
     Indication: HIV INFECTION
     Dosage: 500 MG BID PO
     Route: 048
     Dates: start: 20060227, end: 20060406
  2. HALOPERIDOL [Concomitant]
  3. EMTRICITABINE [Concomitant]
  4. RITONAVIR [Concomitant]
  5. FLUDRICORTISONE [Concomitant]
  6. BENZTROPINE MESYLATE [Concomitant]
  7. AMLODIPINE [Concomitant]
  8. DOCUSATE CALCIUM [Concomitant]
  9. LACTULOSE [Concomitant]
  10. PANTOPRAZOLE [Concomitant]
  11. SULFAMETHOXIZOLE/TRIMETHOPRIM DS [Concomitant]
  12. NYSTATIN [Concomitant]
  13. TOPIRAMATE [Concomitant]
  14. HYDROXYZINE [Concomitant]
  15. HUMULIN REGULAR INSULIN SLIDING SCALE [Concomitant]

REACTIONS (6)
  - BALANCE DISORDER [None]
  - BLOOD BILIRUBIN INCREASED [None]
  - BLOOD GLUCOSE FLUCTUATION [None]
  - FATIGUE [None]
  - MALAISE [None]
  - TRANSAMINASES INCREASED [None]
